FAERS Safety Report 24421275 (Version 1)
Quarter: 2024Q4

REPORT INFORMATION
  Report Type: Spontaneous
  Country: US (occurrence: US)
  Receive Date: 20241010
  Receipt Date: 20241010
  Transmission Date: 20250115
  Serious: Yes (Death, Hospitalization, Other)
  Sender: Agepha Pharmaceuticals
  Company Number: US-AGEPHA PHARMA FZ LLC-AGP202409-000018

PATIENT
  Age: 29 Year
  Sex: Male

DRUGS (4)
  1. COLCHICINE [Suspect]
     Active Substance: COLCHICINE
     Indication: Myopericarditis
     Dosage: 0.6 MILLIGRAM, HALF BOTTLE
     Route: 065
  2. CARVEDILOL [Suspect]
     Active Substance: CARVEDILOL
     Indication: Myopericarditis
     Dosage: 6.25 MILLIGRAM, 12 PILLS
     Route: 065
  3. COCAINE [Concomitant]
     Active Substance: COCAINE
     Indication: Product used for unknown indication
     Dosage: UNK
     Route: 065
  4. METHAMPHETAMINE [Concomitant]
     Active Substance: METHAMPHETAMINE
     Indication: Product used for unknown indication
     Dosage: UNK
     Route: 065

REACTIONS (5)
  - Cardiogenic shock [Fatal]
  - Distributive shock [Fatal]
  - Multiple organ dysfunction syndrome [Fatal]
  - Intentional overdose [Unknown]
  - Product use in unapproved indication [Unknown]
